FAERS Safety Report 9280569 (Version 1)
Quarter: 2013Q2

REPORT INFORMATION
  Report Type: Spontaneous
  Country: CN (occurrence: None)
  Receive Date: 20130503
  Receipt Date: 20130503
  Transmission Date: 20140414
  Serious: Yes (Hospitalization)
  Sender: FDA-Public Use
  Company Number: SYM02013-03425

PATIENT
  Age: 67 Year
  Sex: Female

DRUGS (4)
  1. 5-FU (FLUOROURACIL) (SOLUTION FOR INFUSION) (FLOUROURACIL) [Suspect]
     Indication: COLORECTAL CANCER METASTATIC
     Route: 040
     Dates: start: 20130321, end: 20130321
  2. BLINDED THERAPY (OTHER THERAPEUTIC PRODUCTS) (SOLUTION FOR INFUSION) (NULL) [Suspect]
     Indication: COLORECTAL CANCER METASTATIC
     Route: 041
     Dates: start: 20130321, end: 20130321
  3. IRINOTECAN (IRINOTECAN) (SOLUTION FOR INFUSION) (IRINOTECAN) [Suspect]
     Indication: COLORECTAL CANCER METASTATIC
     Route: 041
     Dates: start: 20130321, end: 20130321
  4. LEUCOVORIN (FOLINIC ACID) (SOLUTION FOR INFUSION) (FOLIC ACID) [Suspect]
     Indication: COLORECTAL CANCER METASTATIC
     Route: 041

REACTIONS (2)
  - Abdominal pain upper [None]
  - Diarrhoea [None]
